FAERS Safety Report 11864767 (Version 1)
Quarter: 2015Q4

REPORT INFORMATION
  Report Type: Spontaneous
  Country: JP (occurrence: JP)
  Receive Date: 20151223
  Receipt Date: 20151223
  Transmission Date: 20160305
  Serious: Yes (Disabling)
  Sender: FDA-Public Use
  Company Number: JP-AMGEN-JPNSP2015137596

PATIENT
  Age: 80 Year
  Sex: Female

DRUGS (6)
  1. ZETIA [Concomitant]
     Active Substance: EZETIMIBE
     Dosage: 10 MG, QD
     Route: 048
  2. REZALTAS [Concomitant]
     Active Substance: AZELNIDIPINE\OLMESARTAN MEDOXOMIL
     Dosage: 20MG/16MG, QD
     Route: 065
  3. SUGLAT [Concomitant]
     Active Substance: IPRAGLIFLOZIN L-PROLINE
     Dosage: 50 MG, QD
     Route: 048
  4. PRALIA [Suspect]
     Active Substance: DENOSUMAB
     Indication: PRODUCT USED FOR UNKNOWN INDICATION
     Dosage: 60 MG, Q6MO
     Route: 058
     Dates: start: 20140514, end: 20151030
  5. LIPITOR [Concomitant]
     Active Substance: ATORVASTATIN CALCIUM
     Dosage: 10 MG, QD
     Route: 048
  6. RABEPRAZOLE                        /01417202/ [Concomitant]
     Dosage: 10 MG, QD
     Route: 048

REACTIONS (1)
  - Osteonecrosis of jaw [Not Recovered/Not Resolved]

NARRATIVE: CASE EVENT DATE: 20151030
